FAERS Safety Report 4778500-4 (Version None)
Quarter: 2005Q3

REPORT INFORMATION
  Report Type: 
  Country: None (occurrence: None)
  Receive Date: 20050926
  Receipt Date: 20050114
  Transmission Date: 20060218
  Serious: Yes (Death)
  Sender: FDA-Public Use
  Company Number: JP-MERCK-0501USA02742

PATIENT
  Age: 48 Year
  Sex: Female

DRUGS (2)
  1. ELSPAR [Suspect]
     Indication: ACUTE LYMPHOCYTIC LEUKAEMIA
     Route: 042
  2. ANTINEOPLASTIC (UNSPECIFIED) [Concomitant]
     Indication: ACUTE LYMPHOCYTIC LEUKAEMIA
     Route: 065

REACTIONS (6)
  - ACTIVATED PARTIAL THROMBOPLASTIN TIME PROLONGED [None]
  - ANTITHROMBIN III DECREASED [None]
  - BLOOD FIBRINOGEN DECREASED [None]
  - CEREBRAL INFARCTION [None]
  - PROTHROMBIN TIME PROLONGED [None]
  - SUPERIOR SAGITTAL SINUS THROMBOSIS [None]
